FAERS Safety Report 5890514-X (Version None)
Quarter: 2008Q3

REPORT INFORMATION
  Report Type: 
  Country: None (occurrence: None)
  Receive Date: 20080922
  Receipt Date: 20080916
  Transmission Date: 20090109
  Serious: Yes (Death, Other)
  Sender: FDA-Public Use
  Company Number: PHHY2008FR21575

PATIENT
  Sex: Female

DRUGS (8)
  1. EXELON [Suspect]
     Indication: DEMENTIA ALZHEIMER'S TYPE
     Dosage: 6 MG, BID
     Route: 048
     Dates: start: 20050425
  2. EXELON [Suspect]
     Dosage: UNK
     Route: 062
     Dates: end: 20080819
  3. NORSET [Suspect]
     Indication: DEMENTIA ALZHEIMER'S TYPE
     Dosage: UNK
     Dates: start: 20080320, end: 20080813
  4. NORSET [Suspect]
     Indication: DEPRESSED MOOD
  5. RISPERDAL [Suspect]
     Indication: DELIRIUM
     Dosage: 2 MG
     Dates: start: 20060110, end: 20080820
  6. RISPERDAL [Suspect]
     Dosage: 0.5 MG
     Dates: start: 20080820
  7. EQUANIL [Suspect]
     Indication: AGITATION
     Dosage: 250 MG
     Dates: start: 20060110
  8. EQUANIL [Suspect]
     Dosage: 400 MG
     Dates: start: 20080805, end: 20080818

REACTIONS (15)
  - ABNORMAL BEHAVIOUR [None]
  - AGITATION [None]
  - ALANINE AMINOTRANSFERASE INCREASED [None]
  - ASPARTATE AMINOTRANSFERASE INCREASED [None]
  - COAGULATION FACTOR V LEVEL DECREASED [None]
  - DELIRIUM [None]
  - DISEASE PROGRESSION [None]
  - GALLBLADDER DISORDER [None]
  - HEPATITIS FULMINANT [None]
  - JAUNDICE [None]
  - MIOSIS [None]
  - PROTHROMBIN TIME RATIO DECREASED [None]
  - RESPIRATORY DISORDER [None]
  - VOMITING [None]
  - WHITE BLOOD CELL COUNT INCREASED [None]
